FAERS Safety Report 18229538 (Version 1)
Quarter: 2020Q3

REPORT INFORMATION
  Report Type: Spontaneous
  Country: JP (occurrence: JP)
  Receive Date: 20200903
  Receipt Date: 20200903
  Transmission Date: 20201103
  Serious: Yes (Other)
  Sender: FDA-Public Use
  Company Number: JP-PFIZER INC-2020334767

PATIENT
  Age: 4 Decade
  Sex: Female

DRUGS (2)
  1. DEPAS [ETIZOLAM] [Concomitant]
     Active Substance: ETIZOLAM
  2. WYPAX [Suspect]
     Active Substance: LORAZEPAM
     Dosage: 12 MG, DAILY
     Route: 048

REACTIONS (4)
  - Altered state of consciousness [Not Recovered/Not Resolved]
  - Drug dependence [Not Recovered/Not Resolved]
  - Incoherent [Not Recovered/Not Resolved]
  - Prescribed overdose [Not Recovered/Not Resolved]
